FAERS Safety Report 14601035 (Version 1)
Quarter: 2018Q1

REPORT INFORMATION
  Report Type: Other
  Country: DE (occurrence: DE)
  Receive Date: 20180305
  Receipt Date: 20180305
  Transmission Date: 20180509
  Serious: Yes (Hospitalization)
  Sender: FDA-Public Use
  Company Number: DE-PHARMA_RESEARCH_SOFTWARE_SOLUTION-USA-POI0580201800086

PATIENT
  Age: 74 Year
  Sex: 0

DRUGS (2)
  1. POTASSIUM CHLORIDE FOR ORAL SOLUTION [Suspect]
     Active Substance: POTASSIUM CHLORIDE
     Indication: HYPOKALAEMIA
     Route: 008
     Dates: start: 2017, end: 2017
  2. ROPIVACVAINE [Concomitant]
     Indication: EPIDURAL ANALGESIA
     Dosage: 4ML PER HOUR
     Route: 008
     Dates: start: 2017, end: 2017

REACTIONS (12)
  - Incorrect route of drug administration [Recovered/Resolved]
  - Quadriplegia [Recovered/Resolved]
  - Respiratory depression [Recovered/Resolved]
  - Spinal cord paralysis [Recovered/Resolved]
  - Inflammatory bowel disease [Recovered/Resolved]
  - Tachycardia [Recovered/Resolved]
  - Pneumonia [Recovered/Resolved]
  - Loss of consciousness [Recovered/Resolved]
  - White blood cell count increased [Recovered/Resolved]
  - Acute myocardial infarction [Recovered/Resolved]
  - Pain [Recovered/Resolved]
  - Blood pressure increased [Recovered/Resolved]

NARRATIVE: CASE EVENT DATE: 2017
